FAERS Safety Report 15869611 (Version 1)
Quarter: 2019Q1

REPORT INFORMATION
  Report Type: Spontaneous
  Country: PT (occurrence: PT)
  Receive Date: 20190125
  Receipt Date: 20190125
  Transmission Date: 20190417
  Serious: Yes (Disabling, Other)
  Sender: FDA-Public Use
  Company Number: PHHY2019PT015765

PATIENT
  Age: 72 Year
  Sex: Female

DRUGS (4)
  1. INFLUENZA VACCINE [Concomitant]
     Active Substance: INFLUENZA VIRUS VACCINE
     Indication: ANTIVIRAL PROPHYLAXIS
     Dosage: 1 DF, UNK (TOTAL)
     Route: 065
  2. CARBAMAZEPINE. [Suspect]
     Active Substance: CARBAMAZEPINE
     Indication: HERPES ZOSTER
     Dosage: 1 DF, QD (200 MG DIA 25/12, 600 MG DIA 26/12 E 400 MG DIA 27/12.)
     Route: 048
     Dates: start: 20181225, end: 20181227
  3. LEPICORTINOLO [Concomitant]
     Active Substance: PREDNISOLONE
     Indication: PRODUCT USED FOR UNKNOWN INDICATION
     Dosage: UNK
     Route: 065
  4. VALACICLOVIR [Concomitant]
     Active Substance: VALACYCLOVIR HYDROCHLORIDE
     Indication: HERPES ZOSTER
     Dosage: UNK
     Route: 065

REACTIONS (5)
  - Fall [Recovered/Resolved]
  - Asthenia [Recovered/Resolved]
  - Somnambulism [Recovered/Resolved]
  - Petit mal epilepsy [Recovered/Resolved]
  - Dizziness [Recovered/Resolved]

NARRATIVE: CASE EVENT DATE: 20181227
